FAERS Safety Report 20512938 (Version 3)
Quarter: 2022Q1

REPORT INFORMATION
  Report Type: Report from Study
  Country: US (occurrence: US)
  Receive Date: 20220224
  Receipt Date: 20220331
  Transmission Date: 20220423
  Serious: Yes (Other)
  Sender: FDA-Public Use
  Company Number: US-TG THERAPEUTICS INC.-TGT002436

PATIENT
  Age: 78 Year
  Sex: Male
  Weight: 89.796 kg

DRUGS (3)
  1. UBLITUXIMAB [Suspect]
     Active Substance: UBLITUXIMAB
     Indication: Chronic lymphocytic leukaemia
     Dosage: 900 MILLIGRAM, Q4 WEEKS
     Route: 042
     Dates: start: 20211130, end: 20220101
  2. UBLITUXIMAB [Suspect]
     Active Substance: UBLITUXIMAB
     Dosage: 900 MILLIGRAM, Q4 WEEKS
     Route: 042
     Dates: start: 20220310
  3. UMBRALISIB [Suspect]
     Active Substance: UMBRALISIB
     Indication: Chronic lymphocytic leukaemia
     Dosage: 800 MILLIGRAM, QD
     Route: 048
     Dates: start: 20211130, end: 20220208

REACTIONS (3)
  - Alanine aminotransferase increased [Recovered/Resolved with Sequelae]
  - Aspartate aminotransferase increased [Recovered/Resolved with Sequelae]
  - Blood bilirubin increased [Recovered/Resolved with Sequelae]

NARRATIVE: CASE EVENT DATE: 20220208
